FAERS Safety Report 5350561-3 (Version None)
Quarter: 2007Q2

REPORT INFORMATION
  Report Type: 
  Country: None (occurrence: None)
  Receive Date: 20070606
  Receipt Date: 20070522
  Transmission Date: 20071010
  Serious: Yes (Life-Threatening, Hospitalization)
  Sender: FDA-Public Use
  Company Number: 37623

PATIENT
  Age: 27 Year
  Sex: Female

DRUGS (1)
  1. ETOMIDATE [Suspect]
     Indication: ANAESTHESIA
     Dosage: 10MG/IV
     Route: 042

REACTIONS (5)
  - MYOCLONUS [None]
  - NO THERAPEUTIC RESPONSE [None]
  - PACEMAKER COMPLICATION [None]
  - PACEMAKER GENERATED ARRHYTHMIA [None]
  - VENTRICULAR TACHYCARDIA [None]
